FAERS Safety Report 21748699 (Version 1)
Quarter: 2022Q4

REPORT INFORMATION
  Report Type: Spontaneous
  Country: US (occurrence: US)
  Receive Date: 20221219
  Receipt Date: 20221219
  Transmission Date: 20230113
  Serious: No
  Sender: FDA-Public Use
  Company Number: US-PFIZER INC-PV202200124036

PATIENT
  Age: 51 Year
  Sex: Male

DRUGS (1)
  1. GENOTROPIN [Suspect]
     Active Substance: SOMATROPIN
     Dosage: 0.7 MG

REACTIONS (4)
  - Device information output issue [Unknown]
  - Device issue [Unknown]
  - Circumstance or information capable of leading to device use error [Unknown]
  - Incorrect dose administered by device [Unknown]
